FAERS Safety Report 7323741-5 (Version None)
Quarter: 2011Q1

REPORT INFORMATION
  Report Type: 
  Country: None (occurrence: None)
  Receive Date: 20110301
  Receipt Date: 20110112
  Transmission Date: 20110831
  Serious: Yes (Other)
  Sender: FDA-Public Use
  Company Number: ES-JNJFOC-20110206102

PATIENT
  Age: 77 Year
  Sex: Female

DRUGS (9)
  1. AMILORIDE HYDROCHLORIDE W/HYDROCHLOROTHIAZIDE [Concomitant]
  2. REMICADE [Suspect]
     Indication: ERYTHRODERMIC PSORIASIS
     Dosage: RECEIVED 11 INFUSIONS
     Route: 042
  3. BROMAZEPAM [Concomitant]
  4. METHOTREXATE [Concomitant]
  5. METFORMIN [Concomitant]
  6. PRAVASTATIN [Concomitant]
  7. ENALAPRIL [Concomitant]
  8. IBUPROFEN [Concomitant]
  9. CARVEDILOL [Concomitant]

REACTIONS (1)
  - ERYTHRODERMIC PSORIASIS [None]
